FAERS Safety Report 6167138-2 (Version None)
Quarter: 2009Q2

REPORT INFORMATION
  Report Type: 
  Country: None (occurrence: None)
  Receive Date: 20090424
  Receipt Date: 20090415
  Transmission Date: 20091009
  Serious: Yes (Other)
  Sender: FDA-Public Use
  Company Number: US-JNJFOC-20081201921

PATIENT
  Sex: Female
  Weight: 81.65 kg

DRUGS (16)
  1. REMICADE [Suspect]
     Route: 042
  2. REMICADE [Suspect]
     Route: 042
  3. REMICADE [Suspect]
     Route: 042
  4. REMICADE [Suspect]
     Route: 042
  5. REMICADE [Suspect]
     Route: 042
  6. REMICADE [Suspect]
     Route: 042
  7. REMICADE [Suspect]
     Indication: CROHN'S DISEASE
     Route: 042
  8. ASACOL [Concomitant]
  9. TYLENOL [Concomitant]
     Indication: PREMEDICATION
     Route: 048
  10. GLYBURIDE [Concomitant]
     Indication: DIABETES MELLITUS
  11. NIFEDIPINE [Concomitant]
     Indication: BLOOD PRESSURE
  12. ZANTAC [Concomitant]
  13. HYDROMORPHONE HCL [Concomitant]
  14. PRENATAL MULTIVITAMIN [Concomitant]
  15. BENADRYL [Concomitant]
     Indication: PREMEDICATION
  16. ZOFRAN [Concomitant]

REACTIONS (5)
  - CLOSTRIDIAL INFECTION [None]
  - CROHN'S DISEASE [None]
  - DRUG EXPOSURE DURING PREGNANCY [None]
  - GESTATIONAL DIABETES [None]
  - MASTITIS [None]
